FAERS Safety Report 6911983-X (Version None)
Quarter: 2010Q3

REPORT INFORMATION
  Report Type: 
  Country: None (occurrence: None)
  Receive Date: 20100806
  Receipt Date: 20071201
  Transmission Date: 20110219
  Serious: No
  Sender: FDA-Public Use
  Company Number: US-PFIZER INC-2007008290

PATIENT
  Sex: Male
  Weight: 73.03 kg

DRUGS (9)
  1. CYTOTEC [Suspect]
  2. MIRALAX [Suspect]
  3. AMITIZA [Suspect]
     Indication: CONSTIPATION
     Route: 048
     Dates: start: 20061213
  4. AMITIZA [Suspect]
     Indication: ABDOMINAL DISTENSION
  5. FIBERCON [Suspect]
  6. ACIDOPHILUS [Suspect]
  7. DULCOLAX [Suspect]
  8. ZELNORM [Concomitant]
     Indication: CONSTIPATION
     Route: 048
     Dates: start: 20061213
  9. ZELNORM [Concomitant]
     Indication: ABDOMINAL DISTENSION

REACTIONS (3)
  - DRUG INEFFECTIVE [None]
  - HYPOAESTHESIA [None]
  - PARAESTHESIA [None]
